FAERS Safety Report 8832254 (Version 1)
Quarter: 2012Q4

REPORT INFORMATION
  Report Type: 
  Country: CM (occurrence: CM)
  Receive Date: 20121009
  Receipt Date: 20121009
  Transmission Date: 20130627
  Serious: Yes (Hospitalization, Other)
  Sender: FDA-Public Use
  Company Number: CM-009507513-1209CMR011910

PATIENT
  Age: 25 Year
  Sex: Male

DRUGS (1)
  1. MECTIZAN [Suspect]
     Indication: ONCHOCERCIASIS
     Dosage: 4 DF, Once
     Route: 048
     Dates: start: 20120911, end: 20120911

REACTIONS (3)
  - Coma [Not Recovered/Not Resolved]
  - Asthenia [Not Recovered/Not Resolved]
  - Encephalopathy [Not Recovered/Not Resolved]
